FAERS Safety Report 26194084 (Version 1)
Quarter: 2025Q4

REPORT INFORMATION
  Report Type: Spontaneous
  Country: EU (occurrence: EU)
  Receive Date: 20251224
  Receipt Date: 20251224
  Transmission Date: 20260119
  Serious: Yes (Life-Threatening, Hospitalization)
  Sender: TEVA
  Company Number: None

PATIENT
  Age: 56 Year
  Sex: Male

DRUGS (8)
  1. CARBOPLATIN [Suspect]
     Active Substance: CARBOPLATIN
     Indication: Lung adenocarcinoma stage IV
     Dosage: 1 CYCLE EVERY 3 WEEKS, CARBOPLATIN (2323A)
     Route: 042
     Dates: start: 20250225, end: 20250430
  2. KEYTRUDA [Suspect]
     Active Substance: PEMBROLIZUMAB
     Indication: Lung adenocarcinoma stage IV
     Dosage: 1 CYCLE EVERY 3 WEEKS
     Route: 042
     Dates: start: 20250225, end: 20250430
  3. CYANOCOBALAMIN [Concomitant]
     Active Substance: CYANOCOBALAMIN
     Indication: Anaemia
     Dosage: 1 INJECTION EVERY 60 DAYS, 5 AMPOULES OF 2 ML
     Route: 030
     Dates: start: 20250217
  4. PEMETREXED [Suspect]
     Active Substance: PEMETREXED
     Indication: Lung adenocarcinoma stage IV
     Dosage: 1 CYCLE EVERY 3 WEEKS, PEMETREXED (2944A)
     Route: 042
     Dates: start: 20250225
  5. TRELEGY ELLIPTA [Concomitant]
     Active Substance: FLUTICASONE FUROATE\UMECLIDINIUM BROMIDE\VILANTEROL TRIFENATATE
     Indication: Product used for unknown indication
     Dosage: 1 INH EVERY 24 HOURS, 92 MICROGRAMS/55 MICROGRAMS/22 MICROGRAMS INHALATION POWDER (SINGLE DOSE), ...
     Route: 065
     Dates: start: 20240614
  6. OMEPRAZOLE [Concomitant]
     Active Substance: OMEPRAZOLE
     Indication: Prophylaxis
     Dosage: 56 CAPSULES (PVC/PE/PVDC/AL)
     Route: 048
     Dates: start: 20250225
  7. VENTOLIN [Concomitant]
     Active Substance: ALBUTEROL SULFATE
     Indication: Product used for unknown indication
     Dosage: 1 INH EVERY 8 HOURS, 100 MICROGRAMS/INHALATION, INHALATION SUSPENSION IN PRESSURE CONTAINER, 1 IN...
     Route: 065
     Dates: start: 20240614
  8. ZOLICO [Concomitant]
     Indication: Anaemia
     Dosage: 28 TABLETS
     Route: 048
     Dates: start: 20250217

REACTIONS (3)
  - Erythema multiforme [Recovered/Resolved]
  - Pancreatitis acute [Recovered/Resolved]
  - Acute kidney injury [Recovered/Resolved]

NARRATIVE: CASE EVENT DATE: 20250501
